FAERS Safety Report 6030552-X (Version None)
Quarter: 2009Q1

REPORT INFORMATION
  Report Type: 
  Country: None (occurrence: None)
  Receive Date: 20090106
  Receipt Date: 20090106
  Transmission Date: 20090719
  Serious: Yes (Life-Threatening, Hospitalization)
  Sender: FDA-Public Use
  Company Number: None

PATIENT
  Age: 16 Year
  Sex: Male
  Weight: 68.0396 kg

DRUGS (1)
  1. DUAC [Suspect]
     Indication: COLITIS ULCERATIVE
     Dosage: TWICE DAILY TOP
     Route: 061
     Dates: start: 20050202, end: 20060604

REACTIONS (1)
  - COLITIS ULCERATIVE [None]
